FAERS Safety Report 19203792 (Version 2)
Quarter: 2021Q4

REPORT INFORMATION
  Report Type: Spontaneous
  Country: US (occurrence: US)
  Receive Date: 20210430
  Receipt Date: 20211013
  Transmission Date: 20220304
  Serious: No
  Sender: FDA-Public Use
  Company Number: US-PFIZER INC-2021383495

PATIENT
  Age: 34 Year
  Sex: Female

DRUGS (2)
  1. SOMAVERT [Suspect]
     Active Substance: PEGVISOMANT
     Indication: Acromegaly
     Dosage: 10 MG, DAILY
     Route: 058
     Dates: start: 2014
  2. SOMAVERT [Suspect]
     Active Substance: PEGVISOMANT
     Dosage: UNK
     Route: 058
     Dates: start: 202012

REACTIONS (6)
  - Intentional dose omission [Unknown]
  - Treatment noncompliance [Unknown]
  - Laziness [Unknown]
  - Headache [Unknown]
  - Hypertrichosis [Unknown]
  - Alopecia [Unknown]

NARRATIVE: CASE EVENT DATE: 20210301
